FAERS Safety Report 7044044-2 (Version None)
Quarter: 2010Q4

REPORT INFORMATION
  Report Type: 
  Country: None (occurrence: None)
  Receive Date: 20101013
  Receipt Date: 20101013
  Transmission Date: 20110411
  Serious: Yes (Life-Threatening)
  Sender: FDA-Public Use
  Company Number: None

PATIENT
  Age: 48 Year
  Sex: Female
  Weight: 82 kg

DRUGS (1)
  1. JANUMET [Suspect]
     Dates: start: 20101001, end: 20101002

REACTIONS (1)
  - DRUG HYPERSENSITIVITY [None]
